FAERS Safety Report 10697664 (Version 1)
Quarter: 2015Q1

REPORT INFORMATION
  Report Type: Spontaneous
  Country: US (occurrence: None)
  Receive Date: 20150107
  Receipt Date: 20150107
  Transmission Date: 20150721
  Serious: Yes (Other)
  Sender: FDA-Public Use
  Company Number: None

PATIENT
  Age: 43 Year
  Sex: Female

DRUGS (1)
  1. DIVALPROEX ER 500MG 250MG [Suspect]
     Active Substance: DIVALPROEX SODIUM
     Route: 048
     Dates: start: 2009

REACTIONS (3)
  - Product quality issue [None]
  - Product substitution issue [None]
  - Nausea [None]

NARRATIVE: CASE EVENT DATE: 200908
